FAERS Safety Report 4646572-3 (Version None)
Quarter: 2005Q2

REPORT INFORMATION
  Report Type: 
  Country: None (occurrence: None)
  Receive Date: 20050427
  Receipt Date: 20041208
  Transmission Date: 20051028
  Serious: No
  Sender: FDA-Public Use
  Company Number: US-GLAXOSMITHKLINE-A0536637A

PATIENT
  Age: 36 Year
  Sex: Female

DRUGS (8)
  1. FLOVENT [Suspect]
     Indication: ASTHMA
     Dosage: 2PUFF TWICE PER DAY
     Route: 055
  2. LIQUIBID D [Concomitant]
  3. ZYRTEC [Concomitant]
  4. ATROVENT [Concomitant]
  5. RHINOCORT [Concomitant]
  6. SINGULAIR [Concomitant]
  7. PREDNISONE [Concomitant]
  8. FLEXERIL [Concomitant]

REACTIONS (1)
  - MYOPIA [None]
